FAERS Safety Report 7036359-9 (Version None)
Quarter: 2010Q4

REPORT INFORMATION
  Report Type: 
  Country: None (occurrence: None)
  Receive Date: 20101008
  Receipt Date: 20101007
  Transmission Date: 20110411
  Serious: Yes (Hospitalization)
  Sender: FDA-Public Use
  Company Number: LT-AMGEN-KDC427434

PATIENT
  Sex: Male

DRUGS (6)
  1. DENOSUMAB [Suspect]
     Indication: METASTASES TO BONE
     Route: 058
     Dates: start: 20100223, end: 20100610
  2. CALCIGRAN [Concomitant]
  3. MOXONIDINE [Concomitant]
  4. ACCUZIDE [Concomitant]
  5. DILTIAZEM [Concomitant]
  6. DICLOFENAC SODIUM [Concomitant]

REACTIONS (1)
  - OSTEOMYELITIS [None]
